FAERS Safety Report 21397573 (Version 2)
Quarter: 2022Q4

REPORT INFORMATION
  Report Type: Report from Study
  Country: TH (occurrence: None)
  Receive Date: 20220930
  Receipt Date: 20221004
  Transmission Date: 20230113
  Serious: Yes (Death)
  Sender: FDA-Public Use
  Company Number: 2022A329899

PATIENT
  Age: 20078 Day
  Sex: Female

DRUGS (2)
  1. LYNPARZA [Suspect]
     Active Substance: OLAPARIB
     Indication: Pancreatic carcinoma metastatic
     Dosage: 150 MG 2 TAB AC IN THE MORNING 1 TAB AC IN THE EVENING150.0MG UNKNOWN
     Route: 048
     Dates: start: 202201, end: 20220310
  2. LYNPARZA [Suspect]
     Active Substance: OLAPARIB
     Indication: Pancreatic carcinoma metastatic
     Dosage: 150.0MG UNKNOWN
     Route: 048
     Dates: start: 20211012, end: 202201

REACTIONS (1)
  - Off label use [Fatal]

NARRATIVE: CASE EVENT DATE: 20220310
